FAERS Safety Report 5567360-X (Version None)
Quarter: 2007Q4

REPORT INFORMATION
  Report Type: 
  Country: None (occurrence: None)
  Receive Date: 20071219
  Receipt Date: 20071207
  Transmission Date: 20080405
  Serious: Yes (Life-Threatening, Other)
  Sender: FDA-Public Use
  Company Number: AU-BAUSCH-2007BL004439

PATIENT

DRUGS (1)
  1. MINIMS CYCLOPENTOLATE HYDROCHLORIDE 0.5% [Suspect]
     Indication: DRUG USE FOR UNKNOWN INDICATION
     Route: 047
     Dates: start: 20070101

REACTIONS (1)
  - ADVERSE EVENT [None]
